FAERS Safety Report 21896752 (Version 2)
Quarter: 2023Q1

REPORT INFORMATION
  Report Type: Report from Study
  Country: US (occurrence: US)
  Receive Date: 20230123
  Receipt Date: 20230125
  Transmission Date: 20230417
  Serious: No
  Sender: FDA-Public Use
  Company Number: US-002147023-NVSC2023US014576

PATIENT
  Sex: Female

DRUGS (1)
  1. KISQALI [Suspect]
     Active Substance: RIBOCICLIB
     Indication: Product used for unknown indication
     Dosage: UNK
     Route: 048

REACTIONS (11)
  - Burning sensation [Unknown]
  - Somnolence [Unknown]
  - Haemorrhoids [Unknown]
  - Skin exfoliation [Unknown]
  - Fatigue [Unknown]
  - White blood cell count decreased [Unknown]
  - Stomatitis [Unknown]
  - Decreased appetite [Unknown]
  - Constipation [Unknown]
  - Cough [Unknown]
  - Vomiting [Unknown]
